FAERS Safety Report 5033470-9 (Version None)
Quarter: 2006Q2

REPORT INFORMATION
  Report Type: 
  Country: None (occurrence: None)
  Receive Date: 20060623
  Receipt Date: 20060612
  Transmission Date: 20061013
  Serious: Yes (Hospitalization)
  Sender: FDA-Public Use
  Company Number: 2006AP02718

PATIENT
  Age: 23503 Day
  Sex: Female
  Weight: 55 kg

DRUGS (4)
  1. TENORMIN [Suspect]
     Indication: HYPERTENSION
     Route: 048
     Dates: start: 19990109, end: 20000421
  2. TENORMIN [Suspect]
     Route: 048
     Dates: start: 20000422, end: 20060412
  3. BLOPRESS [Concomitant]
     Route: 048
     Dates: start: 19990710, end: 20030214
  4. TANATRIL [Concomitant]
     Route: 048
     Dates: start: 19990109, end: 19990625

REACTIONS (3)
  - BLOOD CREATININE INCREASED [None]
  - BLOOD UREA INCREASED [None]
  - RETROPERITONEAL FIBROSIS [None]
